FAERS Safety Report 6471351-4 (Version None)
Quarter: 2009Q4

REPORT INFORMATION
  Report Type: 
  Country: None (occurrence: None)
  Receive Date: 20091203
  Receipt Date: 20080325
  Transmission Date: 20100525
  Serious: Yes (Hospitalization, Other)
  Sender: FDA-Public Use
  Company Number: US-ELI_LILLY_AND_COMPANY-US200802005644

PATIENT
  Sex: Female
  Weight: 56.689 kg

DRUGS (14)
  1. BYETTA [Suspect]
     Indication: TYPE 2 DIABETES MELLITUS
     Dosage: 5 MG, 2/D
     Route: 058
     Dates: start: 20060201
  2. BYETTA [Suspect]
     Dosage: 5 UG, EACH MORNING
     Route: 058
  3. BYETTA [Suspect]
     Dosage: 10 UG, EACH EVENING
  4. BYETTA [Suspect]
     Dosage: 10 UG, 2/D
     Route: 058
  5. BYETTA [Suspect]
     Dosage: 5 UG, EACH MORNING
     Route: 058
  6. BYETTA [Suspect]
     Dosage: 10 UG, EACH EVENING
     Route: 058
  7. BYETTA [Suspect]
     Dosage: 10 UG, 2/D
     Route: 058
  8. ACTOS [Concomitant]
     Indication: TYPE 2 DIABETES MELLITUS
     Dosage: 45 MG, DAILY (1/D)
     Route: 048
  9. GLIPIZIDE [Concomitant]
     Indication: TYPE 2 DIABETES MELLITUS
     Dosage: 5 MG, DAILY (1/D)
     Route: 048
     Dates: start: 20070101
  10. LIPITOR [Concomitant]
     Dosage: 80 MG, DAILY (1/D)
     Route: 048
  11. ZETIA [Concomitant]
     Dosage: 10 MG, DAILY (1/D)
     Dates: start: 20040101
  12. ALLEGRA [Concomitant]
     Indication: HYPERSENSITIVITY
  13. PREVACID [Concomitant]
     Indication: GASTROOESOPHAGEAL REFLUX DISEASE
  14. LISINOPRIL [Concomitant]
     Indication: PROPHYLAXIS

REACTIONS (7)
  - BLOOD GLUCOSE DECREASED [None]
  - BLOOD GLUCOSE INCREASED [None]
  - DECREASED APPETITE [None]
  - HEADACHE [None]
  - NAUSEA [None]
  - SINUS ARRHYTHMIA [None]
  - WEIGHT DECREASED [None]
